FAERS Safety Report 11242051 (Version 3)
Quarter: 2015Q3

REPORT INFORMATION
  Report Type: Spontaneous
  Country: US (occurrence: US)
  Receive Date: 20150706
  Receipt Date: 20150811
  Transmission Date: 20151125
  Serious: No
  Sender: FDA-Public Use
  Company Number: US-TEVA-575595USA

PATIENT
  Sex: Male
  Weight: 72.64 kg

DRUGS (4)
  1. ADDERALL [Suspect]
     Active Substance: AMPHETAMINE ASPARTATE\AMPHETAMINE SULFATE\DEXTROAMPHETAMINE SACCHARATE\DEXTROAMPHETAMINE SULFATE
     Route: 065
  2. NUVIGIL [Suspect]
     Active Substance: ARMODAFINIL
     Route: 048
  3. PROVIGIL [Suspect]
     Active Substance: MODAFINIL
     Indication: FATIGUE
     Dosage: 200 MILLIGRAM DAILY;
     Route: 048
  4. PROVIGIL [Suspect]
     Active Substance: MODAFINIL
     Dosage: 400 MILLIGRAM DAILY;
     Route: 048

REACTIONS (3)
  - Fatigue [Unknown]
  - Product use issue [Unknown]
  - Drug effect decreased [Unknown]
